FAERS Safety Report 18127485 (Version 1)
Quarter: 2020Q3

REPORT INFORMATION
  Report Type: Spontaneous
  Country: US (occurrence: US)
  Receive Date: 20200810
  Receipt Date: 20200810
  Transmission Date: 20201103
  Serious: Yes (Other)
  Sender: FDA-Public Use
  Company Number: US-ACCORD-194570

PATIENT
  Age: 67 Year
  Sex: Male

DRUGS (6)
  1. DEXAMETHASONE. [Suspect]
     Active Substance: DEXAMETHASONE
     Indication: PLASMA CELL LEUKAEMIA
     Dosage: SALVAGE CHEMOTHERAPY
  2. DOXORUBICIN [Suspect]
     Active Substance: DOXORUBICIN
     Indication: PLASMA CELL LEUKAEMIA
     Dosage: SALVAGE CHEMOTHERAPY
  3. CYCLOPHOSPHAMIDE/CYCLOPHOSPHAMIDE MONOHYDRATE [Suspect]
     Active Substance: CYCLOPHOSPHAMIDE
     Indication: PLASMA CELL LEUKAEMIA
     Dosage: SALVAGE CHEMOTHERAPY
  4. BORTEZOMIB. [Suspect]
     Active Substance: BORTEZOMIB
     Indication: PLASMA CELL LEUKAEMIA
     Dosage: SALVAGE CHEMOTHERAPY
  5. ETOPOSIDE. [Suspect]
     Active Substance: ETOPOSIDE
     Indication: PLASMA CELL LEUKAEMIA
     Dosage: SALVAGE CHEMOTHERAPY
  6. CISPLATIN. [Suspect]
     Active Substance: CISPLATIN
     Indication: PLASMA CELL LEUKAEMIA
     Dosage: SALVAGE CHEMOTHERAPY

REACTIONS (2)
  - Pancytopenia [Unknown]
  - Febrile neutropenia [Unknown]
